FAERS Safety Report 20895988 (Version 1)
Quarter: 2022Q2

REPORT INFORMATION
  Report Type: Spontaneous
  Country: FR (occurrence: FR)
  Receive Date: 20220531
  Receipt Date: 20220531
  Transmission Date: 20220721
  Serious: Yes (Hospitalization)
  Sender: FDA-Public Use
  Company Number: None

PATIENT
  Age: 71 Year
  Sex: Male
  Weight: 63 kg

DRUGS (1)
  1. EXJADE [Suspect]
     Active Substance: DEFERASIROX
     Indication: Haemochromatosis
     Dosage: 900 MG, QD
     Route: 048
     Dates: start: 20220222, end: 202204

REACTIONS (1)
  - Chronic kidney disease [Recovering/Resolving]

NARRATIVE: CASE EVENT DATE: 20220321
